FAERS Safety Report 7815827-3 (Version None)
Quarter: 2011Q4

REPORT INFORMATION
  Report Type: 
  Country: None (occurrence: None)
  Receive Date: 20111014
  Receipt Date: 20111007
  Transmission Date: 20120403
  Serious: Yes (Hospitalization)
  Sender: FDA-Public Use
  Company Number: US-MILLENNIUM PHARMACEUTICALS, INC.-2011-04814

PATIENT
  Sex: Female
  Weight: 64.399 kg

DRUGS (3)
  1. RITUXIMAB [Suspect]
     Indication: LYMPHOMA
     Dosage: UNK
     Dates: start: 20110810, end: 20111005
  2. VELCADE [Suspect]
     Indication: LYMPHOMA
     Dosage: 2.56 UNK, UNK
     Dates: start: 20110810
  3. BENDAMUSTINE [Suspect]
     Indication: LYMPHOMA
     Dosage: UNK
     Dates: start: 20110810, end: 20111005

REACTIONS (3)
  - TACHYCARDIA [None]
  - TREMOR [None]
  - RASH [None]
